FAERS Safety Report 5488429-4 (Version None)
Quarter: 2007Q4

REPORT INFORMATION
  Report Type: 
  Country: None (occurrence: None)
  Receive Date: 20071017
  Receipt Date: 20071009
  Transmission Date: 20080405
  Serious: Yes (Hospitalization, Other)
  Sender: FDA-Public Use
  Company Number: US-AVENTIS-200712193US

PATIENT
  Age: 68 Year
  Sex: Male

DRUGS (3)
  1. LANTUS [Suspect]
     Dosage: DOSE: UNK
     Dates: end: 20070301
  2. LASIX [Concomitant]
     Dates: end: 20070301
  3. SYNTHROID [Concomitant]

REACTIONS (4)
  - CARDIAC FAILURE CONGESTIVE [None]
  - DRUG EFFECT PROLONGED [None]
  - HYPOGLYCAEMIA [None]
  - PULMONARY OEDEMA [None]
